FAERS Safety Report 10435310 (Version 2)
Quarter: 2014Q3

REPORT INFORMATION
  Report Type: Spontaneous
  Country: ES (occurrence: ES)
  Receive Date: 20140908
  Receipt Date: 20140908
  Transmission Date: 20150326
  Serious: Yes (Other)
  Sender: FDA-Public Use
  Company Number: ES-AMGEN-ESPSP2014059881

PATIENT
  Age: 54 Year
  Sex: Female

DRUGS (1)
  1. ENBREL [Suspect]
     Active Substance: ETANERCEPT
     Indication: RHEUMATOID ARTHRITIS
     Dosage: 50 MG, WEEKLY (ON TUESDAYS)
     Route: 058
     Dates: end: 20140729

REACTIONS (4)
  - Injection site haematoma [Not Recovered/Not Resolved]
  - Acne [Unknown]
  - Poisoning [Unknown]
  - Pruritus generalised [Unknown]

NARRATIVE: CASE EVENT DATE: 20140729
